FAERS Safety Report 8425332-1 (Version None)
Quarter: 2012Q2

REPORT INFORMATION
  Report Type: 
  Country: None (occurrence: None)
  Receive Date: 20120604
  Receipt Date: 20120525
  Transmission Date: 20120825
  Serious: Yes (Other)
  Sender: FDA-Public Use
  Company Number: AUR-APL-2012-01731

PATIENT
  Age: 38 Year
  Sex: Male
  Weight: 129.5 kg

DRUGS (4)
  1. ZOPICLONE (ZOPICLONE) [Concomitant]
  2. CETIRIZINE [Concomitant]
  3. FLUOXETINE [Suspect]
     Indication: ANXIETY
     Dosage: 20 MG
     Dates: start: 20080808, end: 20120104
  4. PENICILLIN V (PHENOXYMETHLPENICILLIN) [Concomitant]

REACTIONS (2)
  - DEPRESSED MOOD [None]
  - SUICIDAL IDEATION [None]
